FAERS Safety Report 7676169-2 (Version None)
Quarter: 2011Q3

REPORT INFORMATION
  Report Type: 
  Country: None (occurrence: None)
  Receive Date: 20110805
  Receipt Date: 20110718
  Transmission Date: 20111222
  Serious: Yes (Other)
  Sender: FDA-Public Use
  Company Number: M1103217

PATIENT
  Age: 52 Year
  Sex: Female

DRUGS (5)
  1. FLECAINIDE ACETATE [Concomitant]
  2. OMEPRAZOLE (OMEPRAZONE) [Concomitant]
  3. LEVOXYL [Concomitant]
  4. PACERONE [Suspect]
     Indication: ATRIAL FIBRILLATION
     Dosage: 300 MG BID, ORAL
     Route: 048
     Dates: start: 20090701, end: 20091001
  5. XANAX [Concomitant]

REACTIONS (3)
  - OPTIC NERVE DISORDER [None]
  - BLINDNESS TRANSIENT [None]
  - VISION BLURRED [None]
